FAERS Safety Report 12952619 (Version 1)
Quarter: 2016Q4

REPORT INFORMATION
  Report Type: Spontaneous
  Country: FR (occurrence: FR)
  Receive Date: 20161117
  Receipt Date: 20161117
  Transmission Date: 20170207
  Serious: Yes (Hospitalization, Other)
  Sender: FDA-Public Use
  Company Number: FR-PFIZER INC-2016522813

PATIENT
  Age: 72 Year
  Sex: Female

DRUGS (5)
  1. NOCTAMIDE [Suspect]
     Active Substance: LORMETAZEPAM
     Dosage: 2 MG, 2X/DAY
     Route: 048
     Dates: end: 20160921
  2. DIAMICRON LM [Concomitant]
     Active Substance: GLICLAZIDE
     Dosage: 60 MG, 2X/DAY
  3. XANAX [Suspect]
     Active Substance: ALPRAZOLAM
     Dosage: 0.5 MG, 3X/DAY
     Route: 048
     Dates: end: 20160921
  4. FLUOXETINE [Suspect]
     Active Substance: FLUOXETINE HYDROCHLORIDE
     Dosage: 20 MG, 2X/DAY
     Route: 048
     Dates: end: 20160928
  5. GAVISCON /01405501/ [Concomitant]
     Active Substance: SODIUM ALGINATE\SODIUM BICARBONATE

REACTIONS (17)
  - Sepsis [Unknown]
  - Electrocardiogram QRS complex shortened [Unknown]
  - Pyrexia [Unknown]
  - Eye movement disorder [Unknown]
  - Meningioma [Unknown]
  - Inflammation [Unknown]
  - Electrocardiogram T wave amplitude decreased [Unknown]
  - Headache [Recovered/Resolved]
  - Hyponatraemia [Unknown]
  - Cerebellar syndrome [Unknown]
  - Fall [Unknown]
  - Vertigo [Unknown]
  - Atrophy [Unknown]
  - Vomiting [Unknown]
  - Crepitations [Unknown]
  - Dizziness [Recovered/Resolved]
  - Palpitations [Unknown]

NARRATIVE: CASE EVENT DATE: 201608
